FAERS Safety Report 12432604 (Version 1)
Quarter: 2016Q2

REPORT INFORMATION
  Report Type: Other
  Country: JP (occurrence: JP)
  Receive Date: 20160603
  Receipt Date: 20160603
  Transmission Date: 20160815
  Serious: Yes (Other)
  Sender: FDA-Public Use
  Company Number: JP-GUERBET LLC-1053155

PATIENT
  Age: 75 Year
  Sex: Male

DRUGS (7)
  1. HISTOACRYL [Suspect]
     Active Substance: ENBUCRILATE
     Route: 013
  2. PREDNISOLONE. [Concomitant]
     Active Substance: PREDNISOLONE
     Route: 048
  3. PLAVIX [Concomitant]
     Active Substance: CLOPIDOGREL BISULFATE
     Route: 048
  4. ANPLAG(SARPOGRELATE HYDROCHLORIDE, SARPOGRELATE [Concomitant]
     Route: 048
  5. LIPIODOL [Suspect]
     Active Substance: ETHIODIZED OIL
     Indication: THERAPEUTIC EMBOLISATION
     Route: 013
  6. IMIPENEM/ CILASTATIN(IMIPENEM, CILASTATIN)(SOLUTION FOR INJECTION) [Concomitant]
     Active Substance: CILASTATIN SODIUM\IMIPENEM
     Route: 013
  7. WARFARIN SODIUM. [Concomitant]
     Active Substance: WARFARIN SODIUM
     Route: 048

REACTIONS (3)
  - Off label use [Recovered/Resolved]
  - Peritonitis [Recovered/Resolved]
  - Colitis ischaemic [Recovered/Resolved]
